FAERS Safety Report 15257984 (Version 2)
Quarter: 2018Q3

REPORT INFORMATION
  Report Type: Spontaneous
  Country: AU (occurrence: AU)
  Receive Date: 20180808
  Receipt Date: 20180902
  Transmission Date: 20181010
  Serious: Yes (Hospitalization, Other)
  Sender: FDA-Public Use
  Company Number: AU-BAXTER-2018BAX020801

PATIENT
  Age: 64 Year
  Sex: Male

DRUGS (11)
  1. CANDESARTAN. [Concomitant]
     Active Substance: CANDESARTAN
     Indication: PRODUCT USED FOR UNKNOWN INDICATION
     Route: 065
  2. OXALIPLATIN. [Suspect]
     Active Substance: OXALIPLATIN
     Indication: RECTAL CANCER
     Dosage: INFUSION; OXALIPLATIN LIQUID COMPOUNDED WITH GLUCOSE 5%
     Route: 042
     Dates: start: 201504
  3. METFORMIN [Concomitant]
     Active Substance: METFORMIN HYDROCHLORIDE
     Indication: PRODUCT USED FOR UNKNOWN INDICATION
     Route: 065
  4. OXALIPLATIN. [Suspect]
     Active Substance: OXALIPLATIN
     Dosage: DOSE RE?INTRODUCED
     Route: 042
  5. ROSUVASTATIN. [Concomitant]
     Active Substance: ROSUVASTATIN
     Indication: PRODUCT USED FOR UNKNOWN INDICATION
     Route: 065
  6. SITAGLIPTIN [Concomitant]
     Active Substance: SITAGLIPTIN
     Indication: PRODUCT USED FOR UNKNOWN INDICATION
     Route: 065
  7. BAXTER 5% GLUCOSE 25G_500ML INJECTION BP BAG AHB0063 [Suspect]
     Active Substance: DEXTROSE
     Dosage: INFUSION; COMPOUNDED WITH OXALIPLATIN
     Route: 042
     Dates: start: 20180730
  8. OXALIPLATIN. [Suspect]
     Active Substance: OXALIPLATIN
     Dosage: INFUSION; OXALIPLATIN LIQUID COMPOUNDED WITH GLUCOSE 5%
     Route: 042
     Dates: start: 20180730
  9. BAXTER 5% GLUCOSE 25G_500ML INJECTION BP BAG AHB0063 [Suspect]
     Active Substance: DEXTROSE
     Indication: MEDICATION DILUTION
     Dosage: INFUSION; COMPOUNDED WITH OXALIPLATIN
     Route: 042
     Dates: start: 201504
  10. RIVAROXABAN [Concomitant]
     Active Substance: RIVAROXABAN
     Indication: PRODUCT USED FOR UNKNOWN INDICATION
     Route: 065
  11. BAXTER 5% GLUCOSE 25G_500ML INJECTION BP BAG AHB0063 [Suspect]
     Active Substance: DEXTROSE
     Dosage: DOSE RE?INTRODUCED
     Route: 042

REACTIONS (1)
  - Loss of consciousness [Recovered/Resolved]

NARRATIVE: CASE EVENT DATE: 20180730
